FAERS Safety Report 5922216-5 (Version None)
Quarter: 2008Q3

REPORT INFORMATION
  Report Type: 
  Country: None (occurrence: None)
  Receive Date: 20080909
  Receipt Date: 20080701
  Transmission Date: 20090109
  Serious: Yes (Death, Hospitalization)
  Sender: FDA-Public Use
  Company Number: 163-20785-08060526

PATIENT
  Age: 66 Year
  Sex: Male

DRUGS (9)
  1. THALOMID [Suspect]
     Indication: MANTLE CELL LYMPHOMA
     Dosage: 200 MG, 1 IN 1 D, ORAL
     Route: 048
     Dates: start: 20080514
  2. GLUCOSAMINE (GLUCOSAMINE) [Concomitant]
  3. CHONDROITIN (CHONDROITIN) [Concomitant]
  4. VITAMIN B12 [Concomitant]
  5. CENTRUM A-Z (CENTRUM A TO ZINC) [Concomitant]
  6. NEURONTIN [Concomitant]
  7. MOTRIN [Concomitant]
  8. DECADRON [Concomitant]
  9. RITUXAN [Concomitant]

REACTIONS (6)
  - DRUG INTOLERANCE [None]
  - DYSPNOEA [None]
  - MALAISE [None]
  - MANTLE CELL LYMPHOMA [None]
  - NAUSEA [None]
  - OEDEMA PERIPHERAL [None]
